FAERS Safety Report 8437360 (Version 7)
Quarter: 2013Q2

REPORT INFORMATION
  Report Type: Report from Study
  Country: US (occurrence: US)
  Receive Date: 20120302
  Receipt Date: 20130426
  Transmission Date: 20140414
  Serious: Yes (Death, Hospitalization)
  Sender: FDA-Public Use
  Company Number: US-BRISTOL-MYERS SQUIBB COMPANY-16416349

PATIENT
  Age: 50 Year
  Sex: Female
  Weight: 131.52 kg

DRUGS (11)
  1. IXABEPILONE [Suspect]
     Indication: BREAST CANCER
     Dosage: 32MG:15FEB12
     Route: 042
     Dates: start: 20120215, end: 20120215
  2. SORAFENIB [Suspect]
     Indication: BREAST CANCER
     Dosage: COURSE NUMBER: 1.
     Route: 048
     Dates: start: 20100215, end: 20120217
  3. CELEBREX [Concomitant]
     Indication: ARTHRITIS
     Dates: start: 20100101
  4. EXCEDRIN [Concomitant]
     Indication: HEADACHE
     Dosage: 1DF=2TABS
     Dates: start: 20080101
  5. FERROUS SULFATE [Concomitant]
     Indication: ANAEMIA
     Dates: start: 20110101
  6. FISH OIL [Concomitant]
     Indication: NUTRITIONAL SUPPLEMENTATION
     Dates: start: 20100101
  7. GAS-X [Concomitant]
     Indication: FLATULENCE
     Dates: start: 20110101
  8. OMEPRAZOLE [Concomitant]
     Indication: GASTROOESOPHAGEAL REFLUX DISEASE
     Dates: start: 20110101
  9. PROPRANOLOL [Concomitant]
     Indication: HYPERTENSION
     Dates: start: 20080101
  10. VITAMIN D [Concomitant]
     Indication: NUTRITIONAL SUPPLEMENTATION
     Dosage: 1DF=1000 U
     Dates: start: 20080101
  11. ZOLOFT [Concomitant]
     Indication: MENOPAUSAL SYMPTOMS
     Dates: start: 20090101

REACTIONS (3)
  - Death [Fatal]
  - Tumour lysis syndrome [Recovering/Resolving]
  - Renal failure acute [Recovered/Resolved]
